FAERS Safety Report 8565929 (Version 2)
Quarter: 2012Q4

REPORT INFORMATION
  Report Type: 
  Country: ES (occurrence: ES)
  Receive Date: 20120516
  Receipt Date: 20121207
  Transmission Date: 20130627
  Serious: Yes (Other)
  Sender: FDA-Public Use
  Company Number: PHHY2012ES040626

PATIENT
  Age: 53 Year
  Sex: Female

DRUGS (3)
  1. TACROLIMUS [Suspect]
     Dosage: 0.2 mg, QD
  2. PREDNISONE [Concomitant]
     Dosage: UNK UKN, UNK
  3. MYCOPHENOLATE MOFETIL [Concomitant]

REACTIONS (11)
  - Neurotoxicity [Recovered/Resolved]
  - Encephalopathy [Recovered/Resolved]
  - Locked-in syndrome [Recovered/Resolved]
  - Central nervous system lesion [Recovered/Resolved]
  - Trance [Recovered/Resolved]
  - Oculogyric crisis [Recovered/Resolved]
  - Sluggishness [Recovered/Resolved]
  - Coma [Recovered/Resolved]
  - Grand mal convulsion [Recovered/Resolved]
  - Unresponsive to stimuli [Recovered/Resolved]
  - Drug level decreased [Recovered/Resolved]
